FAERS Safety Report 12785046 (Version 1)
Quarter: 2016Q3

REPORT INFORMATION
  Report Type: Spontaneous
  Country: TW (occurrence: TW)
  Receive Date: 20160927
  Receipt Date: 20160927
  Transmission Date: 20161109
  Serious: Yes (Hospitalization)
  Sender: FDA-Public Use
  Company Number: TW-B.I. PHARMACEUTICALS,INC./RIDGEFIELD-2016-BI-23020RF

PATIENT
  Sex: Male

DRUGS (1)
  1. JARDIANCE [Suspect]
     Active Substance: EMPAGLIFLOZIN
     Indication: TYPE 2 DIABETES MELLITUS
     Route: 065

REACTIONS (5)
  - Balanoposthitis [Unknown]
  - Bladder transitional cell carcinoma [Unknown]
  - Transitional cell cancer of the renal pelvis and ureter [Unknown]
  - Bladder neoplasm [Unknown]
  - Haematuria [Unknown]

NARRATIVE: CASE EVENT DATE: 2015
